FAERS Safety Report 4282724-2 (Version None)
Quarter: 2004Q1

REPORT INFORMATION
  Report Type: 
  Country: None (occurrence: None)
  Receive Date: 20040130
  Receipt Date: 20030401
  Transmission Date: 20041129
  Serious: No
  Sender: FDA-Public Use
  Company Number: US-BRISTOL-MYERS SQUIBB COMPANY-12237061

PATIENT
  Age: 52 Year
  Sex: Female
  Weight: 61 kg

DRUGS (4)
  1. SERZONE [Suspect]
     Indication: PSYCHOTIC DISORDER
     Route: 048
     Dates: start: 19970101
  2. LITHIUM CARBONATE [Concomitant]
  3. DEPAKOTE [Concomitant]
  4. KLONOPIN [Concomitant]

REACTIONS (3)
  - DEPRESSION [None]
  - HOT FLUSH [None]
  - WEIGHT FLUCTUATION [None]
